FAERS Safety Report 19054684 (Version 1)
Quarter: 2021Q1

REPORT INFORMATION
  Report Type: Spontaneous
  Country: CA (occurrence: CA)
  Receive Date: 20210325
  Receipt Date: 20210325
  Transmission Date: 20210420
  Serious: Yes (Other)
  Sender: FDA-Public Use
  Company Number: CA-JNJFOC-20210338903

PATIENT
  Age: 70 Year
  Sex: Female
  Weight: 71 kg

DRUGS (16)
  1. SYMBICORT [Concomitant]
     Active Substance: BUDESONIDE\FORMOTEROL FUMARATE DIHYDRATE
     Route: 065
  2. ERGOCALCIFEROL. [Concomitant]
     Active Substance: ERGOCALCIFEROL
     Route: 065
  3. PREDNISONE. [Concomitant]
     Active Substance: PREDNISONE
     Route: 065
  4. ACTONEL [Concomitant]
     Active Substance: RISEDRONATE SODIUM
     Route: 065
  5. BUSCOPAN [Concomitant]
     Active Substance: BUTYLSCOPOLAMINE BROMIDE
     Route: 065
  6. RISEDRONATE SODIUM. [Concomitant]
     Active Substance: RISEDRONATE SODIUM
     Route: 065
  7. DICLOFENAC [Concomitant]
     Active Substance: DICLOFENAC
     Route: 065
  8. VITAMIN D [ERGOCALCIFEROL] [Concomitant]
     Active Substance: ERGOCALCIFEROL
     Route: 065
  9. PANTOPRAZOLE MAGNESIUM [Concomitant]
     Active Substance: PANTOPRAZOLE MAGNESIUM
  10. TYLENOL [Concomitant]
     Active Substance: ACETAMINOPHEN
     Route: 065
  11. ACETAMINOPHEN. [Concomitant]
     Active Substance: ACETAMINOPHEN
     Route: 065
  12. LIPITOR [Concomitant]
     Active Substance: ATORVASTATIN CALCIUM
     Route: 065
  13. MOMETASONE FUROATE. [Concomitant]
     Active Substance: MOMETASONE FUROATE
     Route: 065
  14. SYMBICORT [Concomitant]
     Active Substance: BUDESONIDE\FORMOTEROL FUMARATE DIHYDRATE
  15. REMICADE [Suspect]
     Active Substance: INFLIXIMAB
     Indication: COLITIS ULCERATIVE
     Route: 042
  16. MESALAZINE [Suspect]
     Active Substance: MESALAMINE
     Indication: COLITIS ULCERATIVE
     Route: 065

REACTIONS (11)
  - General physical health deterioration [Recovering/Resolving]
  - Haematochezia [Recovering/Resolving]
  - Chest discomfort [Recovering/Resolving]
  - Pain in jaw [Recovering/Resolving]
  - Tachycardia [Recovering/Resolving]
  - Dizziness [Recovering/Resolving]
  - Blood pressure diastolic increased [Recovering/Resolving]
  - Product use issue [Recovering/Resolving]
  - Off label use [Recovering/Resolving]
  - Head discomfort [Recovering/Resolving]
  - Colitis ulcerative [Recovering/Resolving]
